FAERS Safety Report 4427329-5 (Version None)
Quarter: 2004Q3

REPORT INFORMATION
  Report Type: 
  Country: None (occurrence: None)
  Receive Date: 20040811
  Receipt Date: 20040727
  Transmission Date: 20050211
  Serious: Yes (Hospitalization, Other)
  Sender: FDA-Public Use
  Company Number: US_000542524

PATIENT
  Age: 57 Year
  Sex: Male
  Weight: 77 kg

DRUGS (16)
  1. HUMALOG [Suspect]
     Indication: DIABETES MELLITUS
     Dates: start: 19970101
  2. INSULIN [Suspect]
     Dates: end: 19980101
  3. INSULIN [Suspect]
     Dates: end: 19970101
  4. VELOSULIN [Concomitant]
  5. INDERAL LA [Concomitant]
  6. PLAVIX [Concomitant]
  7. PAXIL [Concomitant]
  8. PREVACID [Concomitant]
  9. ALTACE [Concomitant]
  10. LIPITOR [Concomitant]
  11. ISOSORBIDE MONONITRATE [Concomitant]
  12. ASPIRIN [Concomitant]
  13. VITAMIN C [Concomitant]
  14. VITAMIN E [Concomitant]
  15. TYLENOL PM [Concomitant]
  16. SAW PALMETTO [Concomitant]

REACTIONS (12)
  - ANGINA PECTORIS [None]
  - BLOOD GLUCOSE DECREASED [None]
  - CONVULSION [None]
  - CORONARY ARTERY DISEASE [None]
  - COUGH [None]
  - HYPERGLYCAEMIA [None]
  - INSULIN RESISTANCE [None]
  - LOSS OF CONSCIOUSNESS [None]
  - MEDICAL DEVICE COMPLICATION [None]
  - MYOCARDIAL INFARCTION [None]
  - PHARMACEUTICAL PRODUCT COMPLAINT [None]
  - THERAPY NON-RESPONDER [None]
